FAERS Safety Report 5751985-2 (Version None)
Quarter: 2008Q2

REPORT INFORMATION
  Report Type: 
  Country: None (occurrence: None)
  Receive Date: 20080529
  Receipt Date: 20080527
  Transmission Date: 20081010
  Serious: Yes (Hospitalization)
  Sender: FDA-Public Use
  Company Number: FR-WYE-G01594708

PATIENT
  Sex: Male
  Weight: 9.3 kg

DRUGS (3)
  1. ADVIL [Suspect]
     Indication: PYREXIA
     Route: 048
     Dates: start: 20080506, end: 20080508
  2. CEFACLOR [Concomitant]
     Indication: TONSILLITIS
     Dosage: UNKNOWN
     Route: 048
     Dates: start: 20080506, end: 20080508
  3. DOLIPRANE [Concomitant]
     Indication: PYREXIA
     Dosage: UNKNOWN
     Route: 048
     Dates: start: 20080506, end: 20080508

REACTIONS (3)
  - DUODENAL ULCER [None]
  - MALLORY-WEISS SYNDROME [None]
  - RENAL FAILURE ACUTE [None]
